FAERS Safety Report 13358729 (Version 5)
Quarter: 2018Q4

REPORT INFORMATION
  Report Type: Spontaneous
  Country: US (occurrence: US)
  Receive Date: 20170322
  Receipt Date: 20181101
  Transmission Date: 20190204
  Serious: Yes (Hospitalization)
  Sender: FDA-Public Use
  Company Number: US-VERTEX PHARMACEUTICALS-2017-001593

PATIENT
  Sex: Male

DRUGS (2)
  1. ORKAMBI [Suspect]
     Active Substance: IVACAFTOR\LUMACAFTOR
     Indication: CYSTIC FIBROSIS
     Dosage: 200-125 MG, BID
     Route: 048
     Dates: start: 20170131, end: 201703
  2. ORKAMBI [Suspect]
     Active Substance: IVACAFTOR\LUMACAFTOR
     Dosage: 100-125 MG, FREQUENCY UNSPECIFIED
     Route: 048
     Dates: start: 20170524

REACTIONS (2)
  - Intentional product use issue [Unknown]
  - Oesophagitis chemical [Not Recovered/Not Resolved]

NARRATIVE: CASE EVENT DATE: 2017
